FAERS Safety Report 13410703 (Version 4)
Quarter: 2017Q2

REPORT INFORMATION
  Report Type: Spontaneous
  Country: CN (occurrence: CN)
  Receive Date: 20170406
  Receipt Date: 20170524
  Transmission Date: 20170830
  Serious: Yes (Other)
  Sender: FDA-Public Use
  Company Number: CN-PFIZER INC-2017142607

PATIENT

DRUGS (1)
  1. SOLU-MEDROL [Suspect]
     Active Substance: METHYLPREDNISOLONE SODIUM SUCCINATE
     Dosage: 500 MG, UNK

REACTIONS (4)
  - Product solubility abnormal [Recovering/Resolving]
  - Transaminases increased [Recovering/Resolving]
  - Product quality issue [Unknown]
  - Liver transplant rejection [Unknown]
